FAERS Safety Report 18267112 (Version 1)
Quarter: 2020Q3

REPORT INFORMATION
  Report Type: Spontaneous
  Country: US (occurrence: US)
  Receive Date: 20200914
  Receipt Date: 20200914
  Transmission Date: 20201103
  Serious: Yes (Hospitalization)
  Sender: FDA-Public Use
  Company Number: None

PATIENT
  Sex: Female

DRUGS (11)
  1. HUMIRA [Suspect]
     Active Substance: ADALIMUMAB
     Indication: RHEUMATOID ARTHRITIS
     Dosage: ?          OTHER FREQUENCY:QOWK;?
     Route: 058
     Dates: start: 20200625
  2. ALBUTEROL. [Concomitant]
     Active Substance: ALBUTEROL
  3. BACLOFEN. [Concomitant]
     Active Substance: BACLOFEN
  4. FLONASE [Concomitant]
     Active Substance: FLUTICASONE PROPIONATE
  5. LIDOCAINE. [Concomitant]
     Active Substance: LIDOCAINE
  6. OXYCODONE [Concomitant]
     Active Substance: OXYCODONE
  7. LISINOPRIL. [Concomitant]
     Active Substance: LISINOPRIL
  8. HYDROXYZINE [Concomitant]
     Active Substance: HYDROXYZINE HYDROCHLORIDE
  9. SAVELLA [Concomitant]
     Active Substance: MILNACIPRAN HYDROCHLORIDE
  10. CELEXA [Concomitant]
     Active Substance: CITALOPRAM HYDROBROMIDE
  11. ZYRTEC [Concomitant]
     Active Substance: CETIRIZINE HYDROCHLORIDE

REACTIONS (4)
  - Loss of personal independence in daily activities [None]
  - Condition aggravated [None]
  - Pain [None]
  - Therapy interrupted [None]
